FAERS Safety Report 8001508-2 (Version None)
Quarter: 2011Q4

REPORT INFORMATION
  Report Type: 
  Country: None (occurrence: None)
  Receive Date: 20111222
  Receipt Date: 20111220
  Transmission Date: 20120403
  Serious: Yes (Hospitalization)
  Sender: FDA-Public Use
  Company Number: US-JNJFOC-20111208841

PATIENT
  Sex: Male
  Weight: 97.98 kg

DRUGS (3)
  1. WELLBUTRIN [Concomitant]
     Indication: ANGER
     Route: 048
     Dates: start: 20030101
  2. STELARA [Suspect]
     Indication: PSORIATIC ARTHROPATHY
     Route: 058
     Dates: start: 20110201
  3. LEVOTHYROXINE SODIUM [Concomitant]
     Indication: THYROID DISORDER
     Route: 048
     Dates: start: 20050101

REACTIONS (5)
  - CHEST PAIN [None]
  - PULMONARY OEDEMA [None]
  - THROMBOSIS [None]
  - WHITE BLOOD CELL COUNT INCREASED [None]
  - MUSCLE STRAIN [None]
